FAERS Safety Report 5604123-0 (Version None)
Quarter: 2008Q1

REPORT INFORMATION
  Report Type: 
  Country: None (occurrence: None)
  Receive Date: 20080128
  Receipt Date: 20080123
  Transmission Date: 20080703
  Serious: Yes (Death, Hospitalization)
  Sender: FDA-Public Use
  Company Number: PHEH2008US00895

PATIENT
  Age: 80 Year
  Sex: Male
  Weight: 75.736 kg

DRUGS (9)
  1. EXJADE [Suspect]
     Indication: IRON OVERLOAD
     Dosage: 1625MG, QD
     Route: 048
     Dates: start: 20070901, end: 20080101
  2. PROTONIX [Concomitant]
     Dosage: 40 MG, QD
  3. SPIRONOLACTONE [Concomitant]
     Dosage: 25 MG, QD
  4. METOPROLOL TARTRATE [Concomitant]
     Dosage: 75 MG, UNK
  5. MAGNESIUM [Concomitant]
     Dosage: 250 MG, UNK
  6. VITAMINS [Concomitant]
  7. EYE DROPS [Concomitant]
  8. RED BLOOD CELLS [Concomitant]
     Indication: TRANSFUSION
  9. BLOOD TRANSFUSION [Concomitant]
     Indication: TRANSFUSION
     Dates: start: 20071101

REACTIONS (2)
  - CARDIAC FAILURE CONGESTIVE [None]
  - HEPATIC CIRRHOSIS [None]
